FAERS Safety Report 12619142 (Version 1)
Quarter: 2016Q3

REPORT INFORMATION
  Report Type: Spontaneous
  Country: FR (occurrence: FR)
  Receive Date: 20160803
  Receipt Date: 20160803
  Transmission Date: 20161109
  Serious: Yes (Hospitalization, Other)
  Sender: FDA-Public Use
  Company Number: FR-GLAXOSMITHKLINE-FR2016GSK111800

PATIENT
  Age: 55 Year
  Sex: Male

DRUGS (3)
  1. VOLTARENE [Suspect]
     Active Substance: DICLOFENAC SODIUM
     Indication: TENOSYNOVITIS
     Dosage: 50 MG, TID
     Route: 048
     Dates: start: 20160616, end: 20160620
  2. INEXIUM [Suspect]
     Active Substance: ESOMEPRAZOLE
     Indication: PROPHYLAXIS AGAINST GASTROINTESTINAL ULCER
     Dosage: 20 MG, QD
     Route: 048
     Dates: start: 20160616, end: 20160620
  3. DAFALGAN CODEINE [Suspect]
     Active Substance: ACETAMINOPHEN\CODEINE PHOSPHATE
     Indication: TENOSYNOVITIS
     Dosage: 2 DF, TID
     Route: 048
     Dates: start: 20160616, end: 20160621

REACTIONS (1)
  - Mixed liver injury [Recovering/Resolving]

NARRATIVE: CASE EVENT DATE: 20160624
